FAERS Safety Report 6039432-7 (Version None)
Quarter: 2009Q1

REPORT INFORMATION
  Report Type: 
  Country: None (occurrence: None)
  Receive Date: 20090115
  Receipt Date: 20090109
  Transmission Date: 20090719
  Serious: Yes (Hospitalization, Other)
  Sender: FDA-Public Use
  Company Number: US-AMGEN-QUU324784

PATIENT
  Sex: Female
  Weight: 49 kg

DRUGS (4)
  1. ENBREL [Suspect]
     Indication: RHEUMATOID ARTHRITIS
     Route: 058
     Dates: start: 20080124, end: 20081110
  2. ZOLEDRONIC ACID [Concomitant]
     Dates: start: 20080101
  3. UNSPECIFIED MEDICATION [Concomitant]
     Dates: start: 20000801
  4. AMBIEN [Concomitant]
     Dates: start: 20040101

REACTIONS (2)
  - HOSPITALISATION [None]
  - OVARIAN CANCER [None]
